FAERS Safety Report 8874818 (Version 1)
Quarter: 2012Q4

REPORT INFORMATION
  Report Type: 
  Country: US (occurrence: US)
  Receive Date: 20121030
  Receipt Date: 20121030
  Transmission Date: 20130627
  Serious: No
  Sender: FDA-Public Use
  Company Number: US-009507513-1210USA012598

PATIENT

DRUGS (2)
  1. PEGINTRON [Suspect]
     Indication: HEPATITIS C
     Dosage: 0.5 ml, weekly
     Route: 058
  2. RIBAPAK [Concomitant]

REACTIONS (4)
  - Rash pruritic [Unknown]
  - Incorrect drug administration duration [Unknown]
  - Injection site erythema [Unknown]
  - Pruritus [Unknown]
